FAERS Safety Report 16539077 (Version 1)
Quarter: 2019Q3

REPORT INFORMATION
  Report Type: Spontaneous
  Country: CA (occurrence: CA)
  Receive Date: 20190705
  Receipt Date: 20190705
  Transmission Date: 20191004
  Serious: No
  Sender: FDA-Public Use
  Company Number: None

PATIENT
  Age: 45 Year
  Sex: Female
  Weight: 63 kg

DRUGS (8)
  1. DIAZEPAM. [Suspect]
     Active Substance: DIAZEPAM
  2. ZOPICLONE [Suspect]
     Active Substance: ZOPICLONE
  3. VITAMIN D [Concomitant]
     Active Substance: VITAMIN D NOS
  4. ZOPICLONE [Concomitant]
     Active Substance: ZOPICLONE
  5. CHLORDIAZEPOXIDE. [Suspect]
     Active Substance: CHLORDIAZEPOXIDE
     Indication: ANXIETY
     Route: 048
     Dates: start: 20180107, end: 20190705
  6. MELATONIN [Concomitant]
     Active Substance: MELATONIN
  7. TRAZEDONE [Concomitant]
  8. PROZAC [Suspect]
     Active Substance: FLUOXETINE HYDROCHLORIDE

REACTIONS (16)
  - Angina pectoris [None]
  - Migraine [None]
  - Suicidal ideation [None]
  - Inflammation [None]
  - Anxiety [None]
  - Weight decreased [None]
  - Cognitive disorder [None]
  - Skin burning sensation [None]
  - Major depression [None]
  - Product prescribing issue [None]
  - Drug withdrawal syndrome [None]
  - Palpitations [None]
  - Chest discomfort [None]
  - Hyperacusis [None]
  - Drug dependence [None]
  - Depression [None]

NARRATIVE: CASE EVENT DATE: 20190610
